FAERS Safety Report 18924037 (Version 1)
Quarter: 2021Q1

REPORT INFORMATION
  Report Type: Other
  Country: BR (occurrence: BR)
  Receive Date: 20210222
  Receipt Date: 20210222
  Transmission Date: 20210420
  Serious: Yes (Other)
  Sender: FDA-Public Use
  Company Number: BR-ROCHE-2769765

PATIENT

DRUGS (6)
  1. AVELUMAB [Suspect]
     Active Substance: AVELUMAB
     Indication: NEOPLASM MALIGNANT
     Route: 065
  2. NIVOLUMAB [Suspect]
     Active Substance: NIVOLUMAB
     Indication: NEOPLASM MALIGNANT
     Route: 065
  3. PEMBROLIZUMAB. [Suspect]
     Active Substance: PEMBROLIZUMAB
     Indication: NEOPLASM MALIGNANT
     Route: 065
  4. DURVALUMAB. [Suspect]
     Active Substance: DURVALUMAB
     Indication: NEOPLASM MALIGNANT
     Route: 065
  5. ATEZOLIZUMAB. [Suspect]
     Active Substance: ATEZOLIZUMAB
     Indication: NEOPLASM MALIGNANT
     Route: 065
  6. IPILIMUMAB [Suspect]
     Active Substance: IPILIMUMAB
     Indication: NEOPLASM MALIGNANT
     Route: 065

REACTIONS (27)
  - Nervous system disorder [Unknown]
  - Autoimmune disorder [Unknown]
  - Arthralgia [Unknown]
  - Encephalitis autoimmune [Unknown]
  - Autoimmune endocrine disorder [Unknown]
  - Lymphocytic hypophysitis [Unknown]
  - Eczema [Unknown]
  - Gastrointestinal disorder [Unknown]
  - Neuropathy peripheral [Unknown]
  - Adrenocorticotropic hormone deficiency [Unknown]
  - Dermatomyositis [Unknown]
  - Basedow^s disease [Unknown]
  - Sjogren^s syndrome [Unknown]
  - Myasthenia gravis [Unknown]
  - Guillain-Barre syndrome [Unknown]
  - Psoriasis [Unknown]
  - Rheumatic disorder [Unknown]
  - Skin disorder [Unknown]
  - Pemphigus [Unknown]
  - Rash pruritic [Unknown]
  - Autoimmune lung disease [Unknown]
  - Type 1 diabetes mellitus [Unknown]
  - Autoimmune hypothyroidism [Unknown]
  - Vitiligo [Unknown]
  - Autoimmune dermatitis [Unknown]
  - Autoimmune arthritis [Unknown]
  - Autoimmune myositis [Unknown]
